FAERS Safety Report 6631873-X (Version None)
Quarter: 2010Q1

REPORT INFORMATION
  Report Type: 
  Country: None (occurrence: None)
  Receive Date: 20100312
  Receipt Date: 20100129
  Transmission Date: 20100710
  Serious: Yes (Death, Life-Threatening)
  Sender: FDA-Public Use
  Company Number: US-BAXTER-2009BH015600

PATIENT
  Age: 69 Year
  Sex: Female
  Weight: 65 kg

DRUGS (14)
  1. HEPARIN SODIUM INJECTION [Suspect]
     Indication: DRUG USE FOR UNKNOWN INDICATION
     Route: 041
     Dates: start: 20070913, end: 20070920
  2. HEPARIN SODIUM INJECTION [Suspect]
     Route: 041
     Dates: start: 20070913, end: 20070920
  3. HEPARIN SODIUM INJECTION [Suspect]
     Route: 041
     Dates: start: 20070924, end: 20070926
  4. HEPARIN SODIUM INJECTION [Suspect]
     Route: 041
     Dates: start: 20070924, end: 20070926
  5. HEPARIN SODIUM INJECTION [Suspect]
     Route: 042
     Dates: start: 20070901, end: 20070901
  6. HEPARIN SODIUM INJECTION [Suspect]
     Route: 042
     Dates: start: 20070901, end: 20070901
  7. ASPIRIN [Concomitant]
     Indication: DRUG USE FOR UNKNOWN INDICATION
     Route: 065
  8. OMEPRAZOLE [Concomitant]
     Indication: DRUG USE FOR UNKNOWN INDICATION
     Route: 065
  9. SIMVASTATIN [Concomitant]
     Indication: DRUG USE FOR UNKNOWN INDICATION
     Route: 065
  10. LISINOPRIL [Concomitant]
     Indication: DRUG USE FOR UNKNOWN INDICATION
     Route: 065
  11. PHENYTOIN [Concomitant]
     Indication: DRUG USE FOR UNKNOWN INDICATION
     Route: 065
  12. NITROGLYCERIN COMP. [Concomitant]
     Indication: DRUG USE FOR UNKNOWN INDICATION
     Route: 065
  13. VANCOMYCIN [Concomitant]
     Indication: DRUG USE FOR UNKNOWN INDICATION
     Route: 042
  14. CEFTRIAXONE [Concomitant]
     Indication: DRUG USE FOR UNKNOWN INDICATION
     Route: 065

REACTIONS (13)
  - CONDITION AGGRAVATED [None]
  - DRY GANGRENE [None]
  - EMBOLIC STROKE [None]
  - ENDOCARDITIS [None]
  - FLUID OVERLOAD [None]
  - HEPARIN-INDUCED THROMBOCYTOPENIA [None]
  - HYPOXIA [None]
  - INFUSION SITE HAEMORRHAGE [None]
  - MYOCARDIAL INFARCTION [None]
  - NON-SMALL CELL LUNG CANCER [None]
  - OEDEMA PERIPHERAL [None]
  - RESPIRATORY DISTRESS [None]
  - THROMBOSIS IN DEVICE [None]
